FAERS Safety Report 6191210-4 (Version None)
Quarter: 2009Q2

REPORT INFORMATION
  Report Type: 
  Country: None (occurrence: None)
  Receive Date: 20090513
  Receipt Date: 20090513
  Transmission Date: 20091009
  Serious: Yes (Other)
  Sender: FDA-Public Use
  Company Number: None

PATIENT
  Age: 42 Year
  Sex: Female
  Weight: 56.246 kg

DRUGS (1)
  1. PARAGARD T 380A [Suspect]
     Dates: start: 20080601

REACTIONS (8)
  - ACNE [None]
  - ANXIETY [None]
  - CONDITION AGGRAVATED [None]
  - HAIR METAL TEST ABNORMAL [None]
  - PREMENSTRUAL SYNDROME [None]
  - ROSACEA [None]
  - TENSION [None]
  - VIRAL INFECTION [None]
